FAERS Safety Report 5917751-X (Version None)
Quarter: 2008Q4

REPORT INFORMATION
  Report Type: 
  Country: None (occurrence: None)
  Receive Date: 20081014
  Receipt Date: 20081006
  Transmission Date: 20090506
  Serious: Yes (Hospitalization, Other)
  Sender: FDA-Public Use
  Company Number: US-BAYER-200811977BCC

PATIENT
  Age: 39 Year
  Sex: Female
  Weight: 61 kg

DRUGS (5)
  1. ASPIRIN [Suspect]
     Indication: MYOCARDIAL INFARCTION
     Dosage: TOTAL DAILY DOSE: 2 DF  UNIT DOSE: 1 DF
     Route: 048
     Dates: start: 20051229, end: 20060801
  2. COUMADIN [Interacting]
  3. BIRTH CONTROL MEDICATION [Concomitant]
  4. COREG [Concomitant]
  5. INSPRA [Concomitant]

REACTIONS (6)
  - CARDIAC FAILURE [None]
  - COAGULATION TIME PROLONGED [None]
  - COLLAPSE OF LUNG [None]
  - LEFT VENTRICULAR FAILURE [None]
  - PALPITATIONS [None]
  - PULMONARY OEDEMA [None]
